FAERS Safety Report 16301685 (Version 1)
Quarter: 2019Q2

REPORT INFORMATION
  Report Type: Spontaneous
  Country: CH (occurrence: CH)
  Receive Date: 20190511
  Receipt Date: 20190511
  Transmission Date: 20190711
  Serious: Yes (Other)
  Sender: FDA-Public Use
  Company Number: CH-AMGEN-CHESP2019025311

PATIENT
  Age: 85 Year
  Sex: Female
  Weight: 42 kg

DRUGS (5)
  1. PROLIA [Suspect]
     Active Substance: DENOSUMAB
     Dosage: UNK
     Route: 058
  2. KENACORT [TRIAMCINOLONE ACETONIDE] [Concomitant]
     Dosage: UNK
     Dates: start: 20190117
  3. SINOVIAL [Concomitant]
     Dosage: UNK
  4. PROLIA [Suspect]
     Active Substance: DENOSUMAB
     Indication: OSTEOPOROTIC FRACTURE
     Dosage: UNK
     Route: 058
     Dates: start: 20181119
  5. DIPROPHOS [Concomitant]
     Active Substance: BETAMETHASONE DIPROPIONATE\BETAMETHASONE SODIUM PHOSPHATE
     Dosage: UNK
     Dates: start: 20190117

REACTIONS (18)
  - Musculoskeletal pain [Unknown]
  - Skin lesion [Unknown]
  - Asthenia [Unknown]
  - Hypertension [Recovered/Resolved]
  - Swelling face [Unknown]
  - Skin exfoliation [Unknown]
  - Dermatitis infected [Unknown]
  - Arthralgia [Unknown]
  - Hypertensive crisis [Unknown]
  - Paraesthesia [Not Recovered/Not Resolved]
  - Arthropathy [Unknown]
  - Visual impairment [Unknown]
  - Chest discomfort [Unknown]
  - Pruritus [Unknown]
  - Erythema [Unknown]
  - Dry mouth [Unknown]
  - Fatigue [Unknown]
  - Ear discomfort [Unknown]

NARRATIVE: CASE EVENT DATE: 20181121
